FAERS Safety Report 4700632-7 (Version None)
Quarter: 2005Q2

REPORT INFORMATION
  Report Type: 
  Country: None (occurrence: None)
  Receive Date: 20050627
  Receipt Date: 20050620
  Transmission Date: 20051028
  Serious: Yes (Disabling)
  Sender: FDA-Public Use
  Company Number: NO-MERCK-0506NOR00018

PATIENT
  Age: 61 Year
  Sex: Male

DRUGS (6)
  1. SINGULAIR [Suspect]
     Indication: ASTHMA
     Route: 048
     Dates: start: 20031008, end: 20031105
  2. FORMOTEROL FUMARATE [Concomitant]
     Indication: ASTHMA
     Route: 048
  3. BUDESONIDE [Concomitant]
     Route: 048
     Dates: start: 20001019
  4. BUDESONIDE [Concomitant]
     Indication: ASTHMA
     Route: 048
     Dates: start: 20031120
  5. BUDESONIDE [Concomitant]
     Route: 048
     Dates: end: 20031120
  6. PREDNISOLONE [Concomitant]
     Route: 065
     Dates: start: 20031028, end: 20031101

REACTIONS (1)
  - ALLERGIC GRANULOMATOUS ANGIITIS [None]
